FAERS Safety Report 7441872-6 (Version None)
Quarter: 2011Q2

REPORT INFORMATION
  Report Type: 
  Country: None (occurrence: None)
  Receive Date: 20110428
  Receipt Date: 20110425
  Transmission Date: 20111010
  Serious: Yes (Other)
  Sender: FDA-Public Use
  Company Number: US-ELI_LILLY_AND_COMPANY-US201103005475

PATIENT
  Sex: Female
  Weight: 73.469 kg

DRUGS (5)
  1. CYMBALTA [Suspect]
     Indication: DEPRESSION
     Dosage: 60 MG, UNKNOWN
     Dates: start: 20080213, end: 20110302
  2. CALCIUM [Concomitant]
     Dosage: 500 MG, PRN
  3. WELLBUTRIN XL [Concomitant]
     Dosage: 150 MG, UNK
     Dates: end: 20110412
  4. LAMICTAL [Concomitant]
     Dosage: UNK, EACH MORNING
  5. CLONAZEPAM [Concomitant]
     Dosage: 0.5 MG, TID

REACTIONS (2)
  - DRUG INTERACTION [None]
  - BREAST CANCER STAGE I [None]
